FAERS Safety Report 7441333-4 (Version None)
Quarter: 2011Q2

REPORT INFORMATION
  Report Type: 
  Country: None (occurrence: None)
  Receive Date: 20110415
  Receipt Date: 20110329
  Transmission Date: 20111010
  Serious: Yes (Other)
  Sender: FDA-Public Use
  Company Number: AUR-APU-2011-01125

PATIENT
  Age: 39 Year
  Sex: Female

DRUGS (1)
  1. CEFUROXIME [Suspect]
     Indication: SINUSITIS
     Dosage: 1TABLET-DAILY
     Dates: start: 20110323, end: 20110324

REACTIONS (3)
  - PHARYNGEAL OEDEMA [None]
  - THROAT IRRITATION [None]
  - CHOKING [None]
